FAERS Safety Report 14375527 (Version 1)
Quarter: 2018Q1

REPORT INFORMATION
  Report Type: Spontaneous
  Country: US (occurrence: US)
  Receive Date: 20180110
  Receipt Date: 20180110
  Transmission Date: 20180509
  Serious: Yes (Other)
  Sender: FDA-Public Use
  Company Number: None

PATIENT
  Age: 56 Year
  Sex: Male
  Weight: 129 kg

DRUGS (24)
  1. LISINOPRIL. [Concomitant]
     Active Substance: LISINOPRIL
  2. NITROGLYCERIN. [Concomitant]
     Active Substance: NITROGLYCERIN
  3. SEVELAMER CARBONATE. [Concomitant]
     Active Substance: SEVELAMER CARBONATE
  4. DIPHENHYDRAMINE. [Concomitant]
     Active Substance: DIPHENHYDRAMINE
  5. NOVALOG FLEXPEN [Concomitant]
  6. MEDTRONIC A2DR01 [Concomitant]
  7. HYDROCODONE [Concomitant]
     Active Substance: HYDROCODONE
  8. D-3 [Concomitant]
     Active Substance: CHOLECALCIFEROL
  9. FISH OIL [Concomitant]
     Active Substance: FISH OIL
  10. TRADJENTA [Suspect]
     Active Substance: LINAGLIPTIN
     Indication: HYPERGLYCAEMIA
     Dosage: 1 TAB EVERY OTHER DAY MARCH 1 4 DAY AUG 1 EVERY OTHER DAY ORAL
     Route: 048
     Dates: start: 20170301, end: 20171015
  11. WRIST CUFF FOR BP [Concomitant]
  12. A METER [Concomitant]
  13. RENVELA [Concomitant]
     Active Substance: SEVELAMER CARBONATE
  14. DILTIAZEM HCL [Concomitant]
     Active Substance: DILTIAZEM HYDROCHLORIDE
  15. CARVEDILOL. [Concomitant]
     Active Substance: CARVEDILOL
  16. NIACIN. [Concomitant]
     Active Substance: NIACIN
  17. BIOTRONIC S60, S853 [Concomitant]
  18. GLIPIZIDE ER [Concomitant]
     Active Substance: GLIPIZIDE
  19. SENSIPAR [Concomitant]
     Active Substance: CINACALCET HYDROCHLORIDE
  20. HYDROCODONE-ACETAMINOPHEN [Concomitant]
     Active Substance: ACETAMINOPHEN\HYDROCODONE
  21. CALCIUM ACETATE. [Concomitant]
     Active Substance: CALCIUM ACETATE
  22. TRIPHROCAP [Concomitant]
  23. VITAMIN C [Concomitant]
     Active Substance: ASCORBIC ACID
  24. OMEGA 3-DHA-EPA-FISH OIL [Concomitant]

REACTIONS (6)
  - Blood pressure increased [None]
  - Hypersomnia [None]
  - Haematuria [None]
  - Pruritus [None]
  - Blood glucose increased [None]
  - Asthenia [None]

NARRATIVE: CASE EVENT DATE: 201703
